FAERS Safety Report 9052454 (Version 1)
Quarter: 2013Q1

REPORT INFORMATION
  Report Type: Spontaneous
  Country: GB (occurrence: GB)
  Receive Date: 20130207
  Receipt Date: 20130207
  Transmission Date: 20140127
  Serious: Yes (Hospitalization)
  Sender: FDA-Public Use
  Company Number: GB-PFIZER INC-2013049352

PATIENT
  Sex: Male

DRUGS (3)
  1. MORPHINE SULFATE [Suspect]
     Dosage: UNK
     Route: 065
  2. AMITRIPTYLINE [Suspect]
     Indication: SEDATIVE THERAPY
     Dosage: 60 MG, UNK
     Route: 065
  3. TILODENE [Suspect]
     Dosage: UNK
     Route: 065

REACTIONS (2)
  - Neuralgia [Unknown]
  - Decreased appetite [Unknown]
